FAERS Safety Report 25259109 (Version 2)
Quarter: 2025Q2

REPORT INFORMATION
  Report Type: Spontaneous
  Country: US (occurrence: US)
  Receive Date: 20250501
  Receipt Date: 20250602
  Transmission Date: 20250717
  Serious: No
  Sender: PFIZER
  Company Number: US-PFIZER INC-2020276953

PATIENT
  Age: 72 Year
  Sex: Female

DRUGS (1)
  1. PREMARIN [Suspect]
     Active Substance: ESTROGENS, CONJUGATED
     Dosage: 1 G, WEEKLY (APPLY 1 G INTRAVAGINALLY ONCE A WEEK)
     Route: 067

REACTIONS (3)
  - Off label use [Unknown]
  - Product prescribing error [Unknown]
  - Bladder disorder [Unknown]
